FAERS Safety Report 6923542-3 (Version None)
Quarter: 2010Q3

REPORT INFORMATION
  Report Type: 
  Country: None (occurrence: None)
  Receive Date: 20100813
  Receipt Date: 20100806
  Transmission Date: 20110219
  Serious: Yes (Congenital Anomaly)
  Sender: FDA-Public Use
  Company Number: A0868305A

PATIENT
  Sex: Female

DRUGS (9)
  1. COMBIVIR [Suspect]
     Indication: HIV INFECTION
     Dosage: 2TAB PER DAY
     Dates: start: 20091015, end: 20100617
  2. NORVIR [Suspect]
     Indication: HIV INFECTION
     Dosage: 100MG PER DAY
     Dates: start: 20091015
  3. REYATAZ [Suspect]
     Indication: HIV INFECTION
     Dosage: 300MG PER DAY
     Dates: start: 20091015
  4. ATRIPLA [Suspect]
     Indication: HIV INFECTION
     Dosage: 1TAB PER DAY
     Dates: end: 20090924
  5. ZIDOVUDINE [Suspect]
     Indication: HIV INFECTION
     Dates: start: 20100529, end: 20100602
  6. TRIMETHOPRIM + SULFAMETHOXAZOLE [Concomitant]
  7. ENGERIX-B [Concomitant]
  8. PANDEMIC VACCINE H1N1 UNSPECIFIED [Concomitant]
  9. SEASONAL INFLUENZA VACCINE [Concomitant]

REACTIONS (2)
  - CONGENITAL ACROCHORDON [None]
  - DRUG EXPOSURE DURING PREGNANCY [None]
